FAERS Safety Report 10424275 (Version 1)
Quarter: 2014Q3

REPORT INFORMATION
  Report Type: Spontaneous
  Country: US (occurrence: US)
  Receive Date: 20140902
  Receipt Date: 20140902
  Transmission Date: 20150326
  Serious: Yes (Hospitalization, Other)
  Sender: FDA-Public Use
  Company Number: US-009507513-1408USA014816

PATIENT
  Sex: Female
  Weight: 76.92 kg

DRUGS (1)
  1. NUVARING [Suspect]
     Active Substance: ETHINYL ESTRADIOL\ETONOGESTREL
     Indication: PRODUCT USED FOR UNKNOWN INDICATION
     Dosage: UNK
     Route: 067
     Dates: end: 201203

REACTIONS (11)
  - Nervous system disorder [Recovered/Resolved]
  - Hypotension [Unknown]
  - Convulsion [Recovered/Resolved]
  - Superior sagittal sinus thrombosis [Recovered/Resolved with Sequelae]
  - Cerebral venous thrombosis [Recovered/Resolved with Sequelae]
  - Haemorrhoid operation [Unknown]
  - Thrombosis [Unknown]
  - Headache [Unknown]
  - Hypoaesthesia [Recovered/Resolved]
  - Partial seizures [Recovered/Resolved]
  - Haemorrhoids [Unknown]

NARRATIVE: CASE EVENT DATE: 201203
